FAERS Safety Report 18566155 (Version 1)
Quarter: 2020Q4

REPORT INFORMATION
  Report Type: Spontaneous
  Country: US (occurrence: US)
  Receive Date: 20201201
  Receipt Date: 20201201
  Transmission Date: 20210114
  Serious: No
  Sender: FDA-Public Use
  Company Number: US-BAYER-2020-261949

PATIENT

DRUGS (1)
  1. CLARITIN [Suspect]
     Active Substance: LORATADINE
     Indication: PRODUCT USED FOR UNKNOWN INDICATION
     Dosage: 1 TEASPOON
     Route: 048
     Dates: start: 20200311

REACTIONS (3)
  - Myalgia [Unknown]
  - Insomnia [Unknown]
  - Incorrect dose administered [None]

NARRATIVE: CASE EVENT DATE: 20200311
